FAERS Safety Report 9240260 (Version 1)
Quarter: 2013Q2

REPORT INFORMATION
  Report Type: Report from Study
  Country: CA (occurrence: CA)
  Receive Date: 20130418
  Receipt Date: 20130418
  Transmission Date: 20140414
  Serious: Yes (Hospitalization)
  Sender: FDA-Public Use
  Company Number: CA-UCBSA-083497

PATIENT
  Age: 79 Year
  Sex: Female
  Weight: 60 kg

DRUGS (15)
  1. CIMZIA [Suspect]
     Indication: RHEUMATOID ARTHRITIS
     Route: 058
     Dates: start: 20120927
  2. CIMZIA [Suspect]
     Indication: RHEUMATOID ARTHRITIS
     Dosage: WEEKS 0-2-4
     Route: 058
     Dates: start: 20120816, end: 20120913
  3. PREDNISONE [Concomitant]
     Indication: RHEUMATOID ARTHRITIS
     Route: 048
  4. LASIX [Concomitant]
  5. RABEPRAZOLE [Concomitant]
     Indication: GASTRITIS PROPHYLAXIS
     Dosage: AM
  6. TYLENOL [Concomitant]
     Dosage: 2 TABLETS, TID TO QID
  7. CALCIUM [Concomitant]
  8. VITAMIN D [Concomitant]
  9. TOLOXIN [Concomitant]
  10. DILTIZAEM ER [Concomitant]
  11. RAMAPRIL [Concomitant]
  12. FORTEO [Concomitant]
     Indication: OSTEOPOROSIS
     Dosage: INJECTIONS, ONCE DAILY
  13. NABUNETONE [Concomitant]
  14. VITALUX [Concomitant]
     Dosage: UNKNOWN
  15. WARFARIN [Concomitant]
     Dosage: 1/2 TAB

REACTIONS (2)
  - Chest pain [Recovered/Resolved]
  - Rheumatoid arthritis [Unknown]
